FAERS Safety Report 23609965 (Version 2)
Quarter: 2024Q2

REPORT INFORMATION
  Report Type: Report from Study
  Country: NL (occurrence: NL)
  Receive Date: 20240308
  Receipt Date: 20240516
  Transmission Date: 20240716
  Serious: Yes (Life-Threatening)
  Sender: FDA-Public Use
  Company Number: NL-BAYER-2024A033942

PATIENT
  Age: 83 Year
  Sex: Male

DRUGS (1)
  1. ADEMPAS [Suspect]
     Active Substance: RIOCIGUAT
     Indication: Pulmonary arterial hypertension
     Dosage: 2 MG, TID
     Dates: start: 20190226

REACTIONS (2)
  - Incorrect product administration duration [None]
  - Resuscitation [None]

NARRATIVE: CASE EVENT DATE: 20240220
